FAERS Safety Report 8887691 (Version 1)
Quarter: 2012Q4

REPORT INFORMATION
  Report Type: 
  Country: US (occurrence: US)
  Receive Date: 20121106
  Receipt Date: 20121106
  Transmission Date: 20130627
  Serious: No
  Sender: FDA-Public Use
  Company Number: US-ASTRAZENECA-2012SE81348

PATIENT

DRUGS (9)
  1. PRILOSEC [Suspect]
     Indication: PROPHYLAXIS AGAINST GASTROINTESTINAL ULCER
     Route: 048
  2. PRILOSEC [Suspect]
     Indication: GASTROOESOPHAGEAL REFLUX DISEASE
     Route: 048
  3. PRILOSEC [Suspect]
     Indication: DYSPEPSIA
     Route: 048
  4. PRILOSEC OTC [Suspect]
     Indication: PROPHYLAXIS AGAINST GASTROINTESTINAL ULCER
     Route: 048
  5. PRILOSEC OTC [Suspect]
     Indication: GASTROOESOPHAGEAL REFLUX DISEASE
     Route: 048
  6. PRILOSEC OTC [Suspect]
     Indication: DYSPEPSIA
     Route: 048
  7. PRILOSEC OTC [Suspect]
     Indication: PROPHYLAXIS AGAINST GASTROINTESTINAL ULCER
     Route: 048
  8. PRILOSEC OTC [Suspect]
     Indication: GASTROOESOPHAGEAL REFLUX DISEASE
     Route: 048
  9. PRILOSEC OTC [Suspect]
     Indication: DYSPEPSIA
     Route: 048

REACTIONS (1)
  - Vitamin B12 decreased [Unknown]
